FAERS Safety Report 20974205 (Version 1)
Quarter: 2022Q2

REPORT INFORMATION
  Report Type: Spontaneous
  Country: US (occurrence: None)
  Receive Date: 20220616
  Receipt Date: 20220616
  Transmission Date: 20220721
  Serious: No
  Sender: FDA-Public Use
  Company Number: None

PATIENT
  Age: 80 Year
  Sex: Female
  Weight: 67.13 kg

DRUGS (18)
  1. CAPECITABINE [Suspect]
     Active Substance: CAPECITABINE
     Indication: Neoplasm malignant
     Dosage: FREQUENCY : TWICE A DAY;?
     Route: 048
  2. BUPROPION [Concomitant]
     Active Substance: BUPROPION
  3. CALTRATE 600+D Plus Minerals [Concomitant]
  4. CARVEDILOL [Concomitant]
  5. CENTRUM [Concomitant]
  6. COLESTIPOL HCI [Concomitant]
  7. ESCITALOPRAM OXALATE [Concomitant]
  8. FENOFIBRATE [Concomitant]
  9. FLUCONAZOLE [Concomitant]
  10. HYDROCHLOROTHIAZIDE [Concomitant]
  11. LOSARTAN POTASSIUM [Concomitant]
  12. METFORMIN HCI [Concomitant]
  13. MONTELUKAST SODIUM [Concomitant]
  14. SPIRIVA RESPIMAT [Concomitant]
  15. SYMBICORT [Concomitant]
     Active Substance: BUDESONIDE\FORMOTEROL FUMARATE DIHYDRATE
  16. THEOPHYLLINE ER [Concomitant]
  17. TRAZODONE HCI [Concomitant]
  18. VENTOLIN HFA [Concomitant]

REACTIONS (1)
  - Disease progression [None]
